FAERS Safety Report 19372392 (Version 1)
Quarter: 2021Q2

REPORT INFORMATION
  Report Type: Spontaneous
  Country: US (occurrence: US)
  Receive Date: 20210603
  Receipt Date: 20210603
  Transmission Date: 20210717
  Serious: Yes (Life-Threatening, Hospitalization)
  Sender: FDA-Public Use
  Company Number: None

PATIENT
  Age: 52 Year
  Sex: Female
  Weight: 79.2 kg

DRUGS (6)
  1. SOLUMEDROL 40MG IV [Concomitant]
  2. GAMMAGARD [Suspect]
     Active Substance: HUMAN IMMUNOGLOBULIN G
     Indication: CHRONIC INFLAMMATORY DEMYELINATING POLYRADICULONEUROPATHY
     Dosage: ?          OTHER FREQUENCY:ONCE;?
     Route: 042
     Dates: start: 20210527
  3. GAMMAGARD [Suspect]
     Active Substance: HUMAN IMMUNOGLOBULIN G
     Indication: CHRONIC INFLAMMATORY DEMYELINATING POLYRADICULONEUROPATHY
     Dosage: ?          OTHER FREQUENCY:ONCE;?
     Route: 042
     Dates: start: 20210527, end: 20210527
  4. TYLENOL 650MG PO [Concomitant]
  5. BENADRYL 50MG PO [Concomitant]
  6. SODIUM CHLORIDE 0.9% 500ML IV [Concomitant]

REACTIONS (7)
  - Fluid overload [None]
  - Dyspnoea [None]
  - Pain [None]
  - Myocardial infarction [None]
  - Cough [None]
  - Blood pressure increased [None]
  - Pneumonia [None]

NARRATIVE: CASE EVENT DATE: 20210527
